FAERS Safety Report 23937664 (Version 2)
Quarter: 2024Q2

REPORT INFORMATION
  Report Type: Spontaneous
  Country: US (occurrence: US)
  Receive Date: 20240604
  Receipt Date: 20240621
  Transmission Date: 20240715
  Serious: Yes (Other)
  Sender: FDA-Public Use
  Company Number: US-Blueprint Medicines Corporation-3760

PATIENT
  Sex: Female

DRUGS (1)
  1. AYVAKIT [Suspect]
     Active Substance: AVAPRITINIB
     Indication: Systemic mastocytosis
     Route: 065
     Dates: start: 20240507

REACTIONS (8)
  - Loss of consciousness [Unknown]
  - Muscular weakness [Unknown]
  - Dehydration [Unknown]
  - Dyspnoea [Unknown]
  - Eye swelling [Unknown]
  - Hair texture abnormal [Unknown]
  - Alopecia [Unknown]
  - Gait disturbance [Unknown]
